FAERS Safety Report 8921840 (Version 2)
Quarter: 2012Q4

REPORT INFORMATION
  Report Type: Report from Study
  Country: TW (occurrence: TW)
  Receive Date: 20121121
  Receipt Date: 20121210
  Transmission Date: 20130627
  Serious: Yes (Death, Hospitalization)
  Sender: FDA-Public Use
  Company Number: TW-ABBOTT-12P-153-1011440-00

PATIENT
  Age: 54 Year
  Sex: Male
  Weight: 85 kg

DRUGS (21)
  1. HUMIRA [Suspect]
     Indication: PSORIATIC ARTHROPATHY
     Dates: start: 20120213, end: 20120918
  2. ZITHROMAX [Concomitant]
     Indication: PRODUCT USED FOR UNKNOWN INDICATION
     Dates: start: 20120918, end: 20121001
  3. ACTEIN [Concomitant]
     Indication: PRODUCT USED FOR UNKNOWN INDICATION
     Dates: start: 20120928, end: 20121001
  4. NORVASC [Concomitant]
     Indication: PRODUCT USED FOR UNKNOWN INDICATION
     Dates: start: 20120928, end: 20121003
  5. PREDNISOLONE [Concomitant]
     Indication: PRODUCT USED FOR UNKNOWN INDICATION
     Dates: start: 20120928, end: 20120929
  6. UNASYN [Concomitant]
     Indication: PRODUCT USED FOR UNKNOWN INDICATION
     Dosage: 1.5g/q6h
     Route: 042
     Dates: start: 20120928, end: 20121004
  7. LACTULOSE [Concomitant]
     Indication: PRODUCT USED FOR UNKNOWN INDICATION
     Dosage: 30ml/q6h
     Dates: start: 20120928
  8. ISMO [Concomitant]
     Indication: PRODUCT USED FOR UNKNOWN INDICATION
     Dates: start: 20120929, end: 20121009
  9. FOLIC ACID [Concomitant]
     Dates: start: 20120929
  10. ARHEUMA [Concomitant]
     Dates: start: 20120929
  11. SANDIMMUN NEORAL [Concomitant]
     Indication: PRODUCT USED FOR UNKNOWN INDICATION
     Dates: start: 20120929
  12. SOLU-MEDROL [Concomitant]
     Indication: PRODUCT USED FOR UNKNOWN INDICATION
     Dosage: q8HOURS
     Route: 042
     Dates: start: 20120929, end: 20121003
  13. SENNAPUR [Concomitant]
     Indication: PRODUCT USED FOR UNKNOWN INDICATION
     Dosage: 0.5 hs
     Dates: start: 20120929
  14. ZANIDIP [Concomitant]
     Indication: PRODUCT USED FOR UNKNOWN INDICATION
     Dates: start: 20120929, end: 20121007
  15. TAZOCIN [Concomitant]
     Dosage: 2.25mg/vial
     Route: 042
     Dates: start: 20120930
  16. HERBESSER [Concomitant]
     Indication: PRODUCT USED FOR UNKNOWN INDICATION
     Dosage: #1 q6h
     Dates: start: 20120930
  17. NEXIUM [Concomitant]
     Indication: PRODUCT USED FOR UNKNOWN INDICATION
     Dosage: VIAL/Q12h
     Route: 042
     Dates: start: 20121003, end: 20121007
  18. TARGOCID [Concomitant]
     Indication: PRODUCT USED FOR UNKNOWN INDICATION
     Dosage: VIAL/Q12h
     Route: 042
     Dates: start: 20121004, end: 20121006
  19. TIENAM [Concomitant]
     Indication: PRODUCT USED FOR UNKNOWN INDICATION
     Dosage: VIAL/Q6h
     Dates: start: 20121004, end: 20121007
  20. LEVOPHED [Concomitant]
     Indication: PRODUCT USED FOR UNKNOWN INDICATION
     Dosage: 4mg/4ml/amp
     Route: 042
     Dates: start: 20121006
  21. HYTRIN [Concomitant]
     Indication: PRODUCT USED FOR UNKNOWN INDICATION
     Dosage: 2mg#1 HS
     Dates: start: 20120930

REACTIONS (9)
  - Mental status changes [Fatal]
  - Dyspnoea [Fatal]
  - Septic shock [Fatal]
  - Respiratory failure [Fatal]
  - Wheezing [Unknown]
  - Malaise [Unknown]
  - Cardiomegaly [Unknown]
  - Bronchopneumonia [Unknown]
  - Nasopharyngitis [Unknown]
